FAERS Safety Report 20832242 (Version 1)
Quarter: 2022Q2

REPORT INFORMATION
  Report Type: 
  Country: None (occurrence: None)
  Receive Date: 20220516
  Receipt Date: 20220516
  Transmission Date: 20220721
  Serious: No
  Sender: FDA-Public Use
  Company Number: ES-ROCHE-3050698

PATIENT
  Age: 76 Year
  Weight: 77.3 kg

DRUGS (21)
  1. RO-7425781 [Suspect]
     Active Substance: RO-7425781
     Dosage: START DATE OF MOST RECENT DOSE 0.3 MG OF STUDY DRUG PRIOR TO SAE 09-MAR-2022 1:15 PM?END DATE OF MOS
     Dates: start: 20220216
  2. TOCILIZUMAB [Suspect]
     Active Substance: TOCILIZUMAB
     Dosage: START DATE OF MOST RECENT DOSE OF TOCILIZUMAB PRIOR TO SAE 11/MAR/2022
     Dates: start: 20220311
  3. TOCILIZUMAB [Suspect]
     Active Substance: TOCILIZUMAB
  4. PREDNISONE [Concomitant]
     Active Substance: PREDNISONE
     Dates: start: 20220302
  5. PREDNISONE [Concomitant]
     Active Substance: PREDNISONE
     Dates: start: 20220302
  6. DEXAMETHASONE [Concomitant]
     Active Substance: DEXAMETHASONE
     Dates: start: 20220223, end: 20220223
  7. DEXAMETHASONE [Concomitant]
     Active Substance: DEXAMETHASONE
     Dates: start: 20220216, end: 20220216
  8. DEXAMETHASONE [Concomitant]
     Active Substance: DEXAMETHASONE
     Dates: start: 20220309, end: 20220309
  9. POLARAMINE [Concomitant]
     Active Substance: DEXCHLORPHENIRAMINE MALEATE
     Dates: start: 20220309, end: 20220309
  10. POLARAMINE [Concomitant]
     Active Substance: DEXCHLORPHENIRAMINE MALEATE
     Dates: start: 20220223, end: 20220223
  11. POLARAMINE [Concomitant]
     Active Substance: DEXCHLORPHENIRAMINE MALEATE
     Dates: start: 20220216, end: 20220216
  12. LOVASTATIN [Concomitant]
     Active Substance: LOVASTATIN
     Dates: start: 20200121
  13. OMEPRAZOLE [Concomitant]
     Active Substance: OMEPRAZOLE
     Dates: start: 20200121
  14. ACYCLOVIR [Concomitant]
     Active Substance: ACYCLOVIR
     Dates: start: 20220202
  15. LEXATIN (SPAIN) [Concomitant]
     Dates: start: 20200121
  16. TRIMETHOPRIM [Concomitant]
     Active Substance: TRIMETHOPRIM
     Dates: start: 20220216
  17. SULFAMETHOXAZOLE [Concomitant]
     Active Substance: SULFAMETHOXAZOLE
     Dates: start: 20220216
  18. TOCILIZUMAB [Concomitant]
     Active Substance: TOCILIZUMAB
  19. ACETAMINOPHEN [Concomitant]
     Active Substance: ACETAMINOPHEN
     Dates: start: 20220309, end: 20220309
  20. ACETAMINOPHEN [Concomitant]
     Active Substance: ACETAMINOPHEN
     Dates: start: 20220223, end: 20220223
  21. ACETAMINOPHEN [Concomitant]
     Active Substance: ACETAMINOPHEN
     Dates: start: 20220216, end: 20220216

REACTIONS (1)
  - Cytokine release syndrome [None]

NARRATIVE: CASE EVENT DATE: 20220311
